FAERS Safety Report 24154683 (Version 2)
Quarter: 2024Q3

REPORT INFORMATION
  Report Type: Spontaneous
  Country: IT (occurrence: IT)
  Receive Date: 20240731
  Receipt Date: 20240801
  Transmission Date: 20241017
  Serious: Yes (Hospitalization, Other)
  Sender: RANBAXY
  Company Number: IT-MINISAL02-985003

PATIENT
  Age: 71 Year
  Sex: Female
  Weight: 51.5 kg

DRUGS (4)
  1. OXALIPLATIN [Suspect]
     Active Substance: OXALIPLATIN
     Indication: Gastric cancer
     Dosage: 91 MILLIGRAM
     Route: 040
     Dates: start: 20220103, end: 20220103
  2. DOCETAXEL [Suspect]
     Active Substance: DOCETAXEL\DOCETAXEL ANHYDROUS
     Indication: Gastric cancer
     Dosage: 53 MILLIGRAM
     Route: 040
     Dates: start: 20220103, end: 20220103
  3. FLUOROURACIL [Suspect]
     Active Substance: FLUOROURACIL
     Indication: Gastric cancer
     Dosage: 2784 MILLIGRAM
     Route: 040
     Dates: start: 20220103, end: 20220103
  4. ACIDO LEVO FOLINICO [Concomitant]
     Indication: Product used for unknown indication
     Dosage: 214 MILLIGRAM
     Route: 065

REACTIONS (8)
  - Diarrhoea [Recovering/Resolving]
  - Hypokalaemia [Recovering/Resolving]
  - Off label use [Recovering/Resolving]
  - Decreased appetite [Recovering/Resolving]
  - Anaemia [Recovering/Resolving]
  - Asthenia [Recovering/Resolving]
  - Infusion site reaction [Recovered/Resolved]
  - Pruritus [Recovered/Resolved]

NARRATIVE: CASE EVENT DATE: 20220103
